FAERS Safety Report 9604495 (Version 1)
Quarter: 2013Q4

REPORT INFORMATION
  Report Type: Report from Study
  Country: FR (occurrence: FR)
  Receive Date: 20131008
  Receipt Date: 20131008
  Transmission Date: 20140711
  Serious: Yes (Other)
  Sender: FDA-Public Use
  Company Number: FR-ASTELLAS-2013EU008560

PATIENT
  Age: 80 Year
  Sex: Male
  Weight: 76 kg

DRUGS (3)
  1. ENZALUTAMIDE [Suspect]
     Indication: PROSTATE CANCER
     Dosage: 160 UNK, UID/QD
     Route: 048
     Dates: start: 20130603, end: 20130731
  2. ENZALUTAMIDE [Suspect]
     Dosage: 160 UNK, UID/QD
     Route: 048
     Dates: start: 20130829
  3. ENANTONE                           /00726901/ [Concomitant]
     Indication: PROSTATE CANCER
     Dosage: 11.75 UNK, CYCLIC
     Route: 030

REACTIONS (1)
  - Phlebitis [Recovering/Resolving]
